FAERS Safety Report 15554125 (Version 1)
Quarter: 2018Q4

REPORT INFORMATION
  Report Type: Spontaneous
  Country: GB (occurrence: GB)
  Receive Date: 20181026
  Receipt Date: 20181026
  Transmission Date: 20190205
  Serious: Yes (Other)
  Sender: FDA-Public Use
  Company Number: GB-SUN PHARMACEUTICAL INDUSTRIES LTD-2018RR-189240

PATIENT
  Age: 39 Year
  Sex: Female

DRUGS (2)
  1. VENLAFAXINE [Suspect]
     Active Substance: VENLAFAXINE HYDROCHLORIDE
     Indication: DEPRESSION
     Dosage: 375 MG, DAILY
     Route: 065
     Dates: start: 2003, end: 201808
  2. CITALOPRAM [Suspect]
     Active Substance: CITALOPRAM HYDROBROMIDE
     Indication: DEPRESSION
     Dosage: LIMITED PERIOD 3-6 MONTHS. ()
     Route: 065

REACTIONS (29)
  - Menorrhagia [Unknown]
  - Stress urinary incontinence [Unknown]
  - Loss of libido [Unknown]
  - Intentional product misuse [Unknown]
  - Body temperature increased [Unknown]
  - Constipation [Unknown]
  - Apathy [Unknown]
  - Cervix carcinoma [Unknown]
  - Impulsive behaviour [Unknown]
  - Metrorrhagia [Unknown]
  - Anxiety [Unknown]
  - Disturbance in attention [Unknown]
  - Anorgasmia [Unknown]
  - Menstruation irregular [Unknown]
  - Hostility [Unknown]
  - Aggression [Unknown]
  - Abdominal distension [Unknown]
  - Hypertonic bladder [Unknown]
  - Restlessness [Unknown]
  - Abnormal weight gain [Unknown]
  - Flatulence [Unknown]
  - Obsessive-compulsive disorder [Unknown]
  - Suicidal ideation [Unknown]
  - Hyperhidrosis [Unknown]
  - Panic attack [Unknown]
  - Depression [Unknown]
  - Insomnia [Unknown]
  - Alcohol abuse [Unknown]
  - Hypomania [Unknown]

NARRATIVE: CASE EVENT DATE: 2011
